FAERS Safety Report 5951357-1 (Version None)
Quarter: 2008Q4

REPORT INFORMATION
  Report Type: 
  Country: None (occurrence: None)
  Receive Date: 20081113
  Receipt Date: 20081013
  Transmission Date: 20090506
  Serious: No
  Sender: FDA-Public Use
  Company Number: US-BAYER-200835721NA

PATIENT
  Age: 45 Year
  Sex: Female
  Weight: 92 kg

DRUGS (1)
  1. CLIMARA [Suspect]
     Indication: DRUG USE FOR UNKNOWN INDICATION
     Route: 062
     Dates: start: 20071201

REACTIONS (2)
  - PRODUCT QUALITY ISSUE [None]
  - WEIGHT INCREASED [None]
